FAERS Safety Report 5774842-4 (Version None)
Quarter: 2008Q2

REPORT INFORMATION
  Report Type: 
  Country: None (occurrence: None)
  Receive Date: 20080616
  Receipt Date: 20080616
  Transmission Date: 20081010
  Serious: Yes (Other)
  Sender: FDA-Public Use
  Company Number: None

PATIENT
  Sex: Female
  Weight: 72.5755 kg

DRUGS (1)
  1. SIMVASTATIN [Suspect]
     Indication: HYPERCHOLESTEROLAEMIA
     Dosage: 20 MG. ONCE DAILY ORAL
     Route: 048
     Dates: start: 20080506, end: 20080520

REACTIONS (3)
  - DIPLOPIA [None]
  - DIZZINESS [None]
  - MYALGIA [None]
